FAERS Safety Report 8952981 (Version 6)
Quarter: 2013Q1

REPORT INFORMATION
  Report Type: Report from Study
  Country: NZ (occurrence: NZ)
  Receive Date: 20121203
  Receipt Date: 20130228
  Transmission Date: 20140127
  Serious: Yes (Death, Other)
  Sender: FDA-Public Use
  Company Number: NZ-ROCHE-1096660

PATIENT
  Sex: Male

DRUGS (1)
  1. ZELBORAF [Suspect]
     Indication: METASTATIC MALIGNANT MELANOMA
     Route: 048

REACTIONS (6)
  - Photosensitivity reaction [Recovering/Resolving]
  - Rash [Recovering/Resolving]
  - Renal impairment [Unknown]
  - Disease progression [Not Recovered/Not Resolved]
  - Squamous cell carcinoma [Unknown]
  - Metastases to central nervous system [Fatal]
